FAERS Safety Report 4633162-1 (Version None)
Quarter: 2005Q2

REPORT INFORMATION
  Report Type: 
  Country: None (occurrence: None)
  Receive Date: 20050411
  Receipt Date: 20050411
  Transmission Date: 20051028
  Serious: Yes (Hospitalization)
  Sender: FDA-Public Use
  Company Number: None

PATIENT
  Age: 56 Year
  Sex: Male
  Weight: 73.0291 kg

DRUGS (3)
  1. GEMCITABINE  ELI LILLY  1000MG  10MG/ KG  Q13 DAYS [Suspect]
     Indication: PANCREATIC CARCINOMA METASTATIC
     Dosage: 1000MG/M^2  Q15 DAYS  INTRAVENOUS
     Route: 042
     Dates: start: 20050330, end: 20050330
  2. CISPLATIN [Suspect]
     Indication: PANCREATIC CARCINOMA METASTATIC
     Dosage: 20 MG/M^2  Q15 DAYS  INTRAVENOUS
     Route: 042
     Dates: start: 20050330, end: 20050330
  3. BEVACIZUMAB [Suspect]
     Indication: PANCREATIC CARCINOMA METASTATIC
     Dosage: 10MG/KG  Q15  DAYS
     Dates: start: 20050330, end: 20050330

REACTIONS (2)
  - FATIGUE [None]
  - PYREXIA [None]
